FAERS Safety Report 11830914 (Version 5)
Quarter: 2016Q1

REPORT INFORMATION
  Report Type: Report from Study
  Country: BR (occurrence: BR)
  Receive Date: 20151214
  Receipt Date: 20160120
  Transmission Date: 20160525
  Serious: Yes (Other)
  Sender: FDA-Public Use
  Company Number: BR-ROCHE-1663804

PATIENT
  Age: 27 Year
  Sex: Male
  Weight: 56 kg

DRUGS (2)
  1. PULMOZYME [Suspect]
     Active Substance: DORNASE ALFA
     Indication: CYSTIC FIBROSIS
     Route: 065
  2. CREON [Concomitant]
     Active Substance: PANCRELIPASE AMYLASE\PANCRELIPASE LIPASE\PANCRELIPASE PROTEASE
     Route: 065

REACTIONS (12)
  - Pseudomonas infection [Recovered/Resolved]
  - Malaise [Not Recovered/Not Resolved]
  - Asphyxia [Unknown]
  - Respiratory disorder [Recovered/Resolved]
  - Dyspnoea [Not Recovered/Not Resolved]
  - Fatigue [Not Recovered/Not Resolved]
  - Secretion discharge [Not Recovered/Not Resolved]
  - Catarrh [Unknown]
  - Chest discomfort [Unknown]
  - Medication error [Unknown]
  - Aphasia [Unknown]
  - Cough [Not Recovered/Not Resolved]
